FAERS Safety Report 20621794 (Version 1)
Quarter: 2022Q1

REPORT INFORMATION
  Report Type: Report from Study
  Country: US (occurrence: US)
  Receive Date: 20220322
  Receipt Date: 20220322
  Transmission Date: 20220423
  Serious: Yes (Other)
  Sender: FDA-Public Use
  Company Number: US-NOVARTISPH-NVSC2022US061778

PATIENT
  Sex: Male

DRUGS (1)
  1. ENTRESTO [Suspect]
     Active Substance: SACUBITRIL\VALSARTAN
     Indication: Product used for unknown indication
     Dosage: 24.26 MG/KG, QD (24/26 MG)
     Route: 048

REACTIONS (5)
  - Skin cancer [Unknown]
  - Blindness unilateral [Unknown]
  - Deafness [Unknown]
  - Ejection fraction decreased [Unknown]
  - Hypotension [Unknown]
